FAERS Safety Report 8372957-8 (Version None)
Quarter: 2012Q2

REPORT INFORMATION
  Report Type: 
  Country: None (occurrence: None)
  Receive Date: 20120521
  Receipt Date: 20110912
  Transmission Date: 20120825
  Serious: No
  Sender: FDA-Public Use
  Company Number: US-ASTRAZENECA-2011SE63090

PATIENT
  Age: 74 Year
  Sex: Female

DRUGS (5)
  1. PRILOSEC OTC [Suspect]
     Indication: GASTRITIS
     Route: 048
     Dates: start: 20110812
  2. CHOLESTEROL- AND TRIGLYCERIDE REDUCERS [Concomitant]
     Indication: BLOOD CHOLESTEROL ABNORMAL
  3. BENADRYL [Concomitant]
     Dosage: UNKNOWN
  4. SLEEPING PILL [Concomitant]
     Dosage: UNK DOSE, 1 /WEEK
     Route: 048
  5. PROCARDIA [Concomitant]
     Indication: HYPERTENSION
     Dosage: UNKNOWN

REACTIONS (5)
  - ARTHRALGIA [None]
  - CONDITION AGGRAVATED [None]
  - DRUG INEFFECTIVE [None]
  - GASTRITIS [None]
  - ABDOMINAL PAIN UPPER [None]
